FAERS Safety Report 15555594 (Version 1)
Quarter: 2018Q4

REPORT INFORMATION
  Report Type: Spontaneous
  Country: US (occurrence: US)
  Receive Date: 20181026
  Receipt Date: 20181026
  Transmission Date: 20190205
  Serious: Yes (Other)
  Sender: FDA-Public Use
  Company Number: US-PFIZER INC-2018399787

PATIENT
  Age: 20 Year
  Sex: Male
  Weight: 64 kg

DRUGS (3)
  1. XELJANZ [Suspect]
     Active Substance: TOFACITINIB CITRATE
     Indication: CROHN^S DISEASE
     Dosage: 10 MG, 2X/DAY (BID)
     Route: 048
  2. LIALDA [Concomitant]
     Active Substance: MESALAMINE
     Dosage: 2.4 G, DAILY
  3. LIALDA [Concomitant]
     Active Substance: MESALAMINE
     Dosage: 4.8 G, DAILY (1.2 GRAM TAKE 4 ONCE A DAY)

REACTIONS (11)
  - Weight decreased [Unknown]
  - Flatulence [Unknown]
  - Haematochezia [Unknown]
  - Abdominal pain upper [Unknown]
  - Abdominal pain [Unknown]
  - Colitis [Unknown]
  - Anxiety [Unknown]
  - Change of bowel habit [Unknown]
  - Arthritis [Unknown]
  - Diarrhoea [Unknown]
  - Condition aggravated [Unknown]
